FAERS Safety Report 6631726-7 (Version None)
Quarter: 2010Q1

REPORT INFORMATION
  Report Type: 
  Country: None (occurrence: None)
  Receive Date: 20100312
  Receipt Date: 20100304
  Transmission Date: 20100710
  Serious: Yes (Death)
  Sender: FDA-Public Use
  Company Number: JP-PFIZER INC-2010021393

PATIENT
  Age: 67 Year
  Sex: Male

DRUGS (8)
  1. ADRIACIN [Suspect]
     Indication: LYMPHOMA
     Dosage: 70 MG, UNK
     Route: 041
     Dates: start: 20090930, end: 20090930
  2. ONCOVIN [Suspect]
     Indication: LYMPHOMA
     Dosage: 2 MG, UNK
     Route: 041
     Dates: start: 20090930, end: 20090930
  3. ENDOXAN [Concomitant]
     Dosage: 1000 MG, UNK
     Route: 041
     Dates: start: 20090930, end: 20090930
  4. PREDONINE [Concomitant]
     Dosage: 100 MG, 1X/DAY
     Route: 048
     Dates: start: 20090930, end: 20091004
  5. RAMOSETRON HYDROCHLORIDE [Concomitant]
     Dosage: 0.1 MG, UNK
     Route: 048
     Dates: start: 20090930, end: 20090930
  6. ALLOPURINOL [Concomitant]
     Dosage: UNK
     Route: 048
  7. EUGLUCON [Concomitant]
     Dosage: UNK
     Route: 048
  8. BASEN [Concomitant]
     Dosage: UNK
     Route: 048

REACTIONS (2)
  - BONE MARROW FAILURE [None]
  - LIVER DISORDER [None]
